FAERS Safety Report 4597043-4 (Version None)
Quarter: 2005Q1

REPORT INFORMATION
  Report Type: 
  Country: None (occurrence: None)
  Receive Date: 20050301
  Receipt Date: 20050216
  Transmission Date: 20050727
  Serious: Yes (Other)
  Sender: FDA-Public Use
  Company Number: 2005035009

PATIENT
  Age: 65 Year
  Sex: Female

DRUGS (2)
  1. CABERGOLINE [Suspect]
     Indication: PARKINSON'S DISEASE
     Dosage: 4 MG, ORAL
     Route: 048
     Dates: start: 20031222, end: 20050131
  2. SINEMET [Concomitant]

REACTIONS (1)
  - MITRAL VALVE INCOMPETENCE [None]
